FAERS Safety Report 4480999-8 (Version None)
Quarter: 2004Q4

REPORT INFORMATION
  Report Type: 
  Country: None (occurrence: None)
  Receive Date: 20041019
  Receipt Date: 20041012
  Transmission Date: 20050328
  Serious: Yes (Other)
  Sender: FDA-Public Use
  Company Number: A0529605A

PATIENT
  Age: 64 Year
  Sex: Female
  Weight: 86.2288 kg

DRUGS (8)
  1. NICODERM CQ [Suspect]
     Indication: EX-SMOKER
     Dosage: PER DAY TRANSDERMAL
     Route: 062
     Dates: start: 20040708, end: 20040808
  2. ISOSORBIDE MONONITRATE [Concomitant]
  3. CLOPIDOGREL BISULFATE [Concomitant]
  4. AMLODIPINE [Concomitant]
  5. PANTOPRAZOLE [Concomitant]
  6. LIBRAX [Concomitant]
  7. TYLENOL W/ CODEINE NO. 4 [Concomitant]
  8. COMBIVENT [Concomitant]

REACTIONS (2)
  - NICOTINE DEPENDENCE [None]
  - PULMONARY MASS [None]
